FAERS Safety Report 8182685-X (Version None)
Quarter: 2012Q1

REPORT INFORMATION
  Report Type: 
  Country: None (occurrence: None)
  Receive Date: 20120305
  Receipt Date: 20120228
  Transmission Date: 20120608
  Serious: No
  Sender: FDA-Public Use
  Company Number: US-PFIZER INC-2012053039

PATIENT
  Sex: Male
  Weight: 72.562 kg

DRUGS (1)
  1. VIAGRA [Suspect]
     Indication: CARDIOVASCULAR DISORDER
     Dosage: 100 MG, AS NEEDED
     Route: 048
     Dates: start: 20080101

REACTIONS (3)
  - NAUSEA [None]
  - GASTRIC DISORDER [None]
  - RETCHING [None]
